FAERS Safety Report 15957513 (Version 1)
Quarter: 2019Q1

REPORT INFORMATION
  Report Type: Spontaneous
  Country: US (occurrence: US)
  Receive Date: 20190123
  Receipt Date: 20190123
  Transmission Date: 20190417
  Serious: Yes (Disabling)
  Sender: FDA-Public Use
  Company Number: None

PATIENT
  Age: 20 Year
  Sex: Female
  Weight: 49.5 kg

DRUGS (1)
  1. CIPROFLOXACIN. [Suspect]
     Active Substance: CIPROFLOXACIN

REACTIONS (5)
  - Fibromyalgia [None]
  - Paraesthesia [None]
  - Lymphoedema [None]
  - Systemic lupus erythematosus [None]
  - Rheumatoid arthritis [None]

NARRATIVE: CASE EVENT DATE: 20180228
